FAERS Safety Report 10537632 (Version 2)
Quarter: 2014Q4

REPORT INFORMATION
  Report Type: Spontaneous
  Country: GB (occurrence: None)
  Receive Date: 20141021
  Receipt Date: 20141125
  Transmission Date: 20150529
  Serious: Yes (Death, Other)
  Sender: FDA-Public Use
  Company Number: KAD201410-001237

PATIENT
  Age: 39 Year
  Sex: Male
  Weight: 90 kg

DRUGS (12)
  1. ZAPONEX [Suspect]
     Active Substance: CLOZAPINE
     Dosage: 150 MG MANE, 400 MG NOCTE, ORAL
     Route: 048
     Dates: start: 20131206, end: 20140919
  2. LACTULOSE (LACTULOSE) [Concomitant]
     Active Substance: LACTULOSE
  3. HYOSCINE HYDROBROMIDE (HYOSCINE HYDROBROMIDE) [Concomitant]
  4. SENNA (SENNA) [Concomitant]
  5. HEROIN [Suspect]
     Active Substance: DIACETYLMORPHINE
  6. RIBAVIRIN. [Suspect]
     Active Substance: RIBAVIRIN
     Indication: HEPATITIS C
     Route: 048
     Dates: start: 20131206, end: 20140919
  7. CHLORPROMAZINE (CHLORPROMAZINE) [Concomitant]
     Active Substance: CHLORPROMAZINE
  8. CINNARIZINE (CINNARIZINE) [Concomitant]
  9. DIAZEPAM. [Concomitant]
     Active Substance: DIAZEPAM
  10. VIRAFERON [Suspect]
     Active Substance: INTERFERON ALFA-2B
     Indication: HEPATITIS C
     Route: 058
  11. TRIHEXYPHENIDYL (TRIHEXYPHENIDYL) [Concomitant]
  12. LORAZEPAM (LORAZEPAM) [Concomitant]
     Active Substance: LORAZEPAM

REACTIONS (7)
  - Product use issue [None]
  - Hepatitis C [None]
  - Monocyte count increased [None]
  - Activated partial thromboplastin time prolonged [None]
  - Leukopenia [None]
  - International normalised ratio decreased [None]
  - Neutropenia [None]

NARRATIVE: CASE EVENT DATE: 20140919
